FAERS Safety Report 9391808 (Version 7)
Quarter: 2014Q3

REPORT INFORMATION
  Report Type: Report from Study
  Country: IL (occurrence: IL)
  Receive Date: 20130709
  Receipt Date: 20140918
  Transmission Date: 20150326
  Serious: Yes (Death, Hospitalization)
  Sender: FDA-Public Use
  Company Number: IL-BRISTOL-MYERS SQUIBB COMPANY-19058809

PATIENT
  Age: 75 Year
  Sex: Female

DRUGS (10)
  1. CARBOPLATIN. [Suspect]
     Active Substance: CARBOPLATIN
     Indication: NON-SMALL CELL LUNG CANCER
     Route: 042
     Dates: start: 20130620, end: 20130620
  2. HISTAMINE [Concomitant]
     Active Substance: HISTAMINE
     Dates: start: 1997
  3. GASTRO [Concomitant]
     Dates: start: 20130620, end: 20130620
  4. LORATADINE. [Concomitant]
     Active Substance: LORATADINE
     Dates: start: 20130620, end: 20130620
  5. CETIRIZINE [Concomitant]
     Active Substance: CETIRIZINE HYDROCHLORIDE
     Dates: start: 1997
  6. FORIC [Concomitant]
     Dosage: FORIC PREGNANCY
     Dates: start: 2011
  7. DEXAMETHASONE. [Concomitant]
     Active Substance: DEXAMETHASONE
     Dates: start: 20130620, end: 20130620
  8. KYTRIL [Concomitant]
     Active Substance: GRANISETRON HYDROCHLORIDE
     Dates: start: 20130620, end: 20130620
  9. GLUCOMIN [Concomitant]
     Dates: start: 2005
  10. PACLITAXEL. [Suspect]
     Active Substance: PACLITAXEL
     Indication: NON-SMALL CELL LUNG CANCER
     Dosage: 20-JUN-13 TO 20-JUN-13: 256 MG
     Route: 042
     Dates: start: 20130620, end: 20130620

REACTIONS (4)
  - Pyrexia [Recovered/Resolved]
  - Pleural effusion [Recovered/Resolved]
  - Malignant neoplasm progression [Fatal]
  - Cerebrovascular accident [Not Recovered/Not Resolved]

NARRATIVE: CASE EVENT DATE: 20130626
